FAERS Safety Report 4899934-3 (Version None)
Quarter: 2006Q1

REPORT INFORMATION
  Report Type: 
  Country: None (occurrence: None)
  Receive Date: 20060203
  Receipt Date: 20060124
  Transmission Date: 20060701
  Serious: Yes (Hospitalization)
  Sender: FDA-Public Use
  Company Number: EMADSS2003004355

PATIENT

DRUGS (7)
  1. INFLIXIMAB, RECOMBINANT [Suspect]
     Route: 042
  2. INFLIXIMAB, RECOMBINANT [Suspect]
     Route: 042
  3. PRAZEPAM [Concomitant]
     Route: 048
  4. SEVREDOL [Concomitant]
     Route: 048
  5. CO-PROXAMOL [Concomitant]
     Route: 048
  6. CO-PROXAMOL [Concomitant]
     Route: 048
  7. FENTANYL [Concomitant]
     Route: 062

REACTIONS (3)
  - INTESTINAL OBSTRUCTION [None]
  - NEOPLASM PROGRESSION [None]
  - PANIC ATTACK [None]
